FAERS Safety Report 24162563 (Version 1)
Quarter: 2024Q3

REPORT INFORMATION
  Report Type: Spontaneous
  Country: CN (occurrence: CN)
  Receive Date: 20240801
  Receipt Date: 20240801
  Transmission Date: 20241016
  Serious: Yes (Life-Threatening, Other)
  Sender: BLUEPRINT MEDICINES
  Company Number: CN-CSTONE PHARMACEUTICALS (SUZHOU) CO., LTD.-2024CN00982

PATIENT
  Age: 44 Year
  Sex: Female

DRUGS (6)
  1. AYVAKIT [Suspect]
     Active Substance: AVAPRITINIB
     Indication: Gastrointestinal stromal tumour
     Route: 065
     Dates: start: 20230131
  2. AYVAKIT [Suspect]
     Active Substance: AVAPRITINIB
     Route: 065
     Dates: start: 20230405
  3. SUNITINIB [Suspect]
     Active Substance: SUNITINIB
     Indication: Gastrointestinal stromal tumour
     Route: 065
     Dates: start: 20230131
  4. SUNITINIB [Suspect]
     Active Substance: SUNITINIB
     Route: 065
     Dates: start: 20230326
  5. SUNITINIB [Suspect]
     Active Substance: SUNITINIB
     Route: 065
     Dates: start: 20230405
  6. SUNITINIB [Suspect]
     Active Substance: SUNITINIB
     Route: 065
     Dates: start: 2022, end: 20221207

REACTIONS (12)
  - Myelosuppression [Recovered/Resolved]
  - Platelet count decreased [Recovered/Resolved]
  - White blood cell count decreased [Recovered/Resolved]
  - Neutrophil count decreased [Recovered/Resolved]
  - Erythema [Unknown]
  - Face oedema [Unknown]
  - Eyelid oedema [Unknown]
  - Memory impairment [Unknown]
  - Memory impairment [Recovered/Resolved]
  - Face oedema [Recovered/Resolved]
  - Eyelid oedema [Recovered/Resolved]
  - Off label use [Unknown]

NARRATIVE: CASE EVENT DATE: 20230131
